FAERS Safety Report 11753477 (Version 1)
Quarter: 2015Q4

REPORT INFORMATION
  Report Type: Report from Study
  Country: US (occurrence: US)
  Receive Date: 20151119
  Receipt Date: 20151119
  Transmission Date: 20160304
  Serious: Yes (Hospitalization)
  Sender: FDA-Public Use
  Company Number: US-BIOGENIDEC-2015BI152123

PATIENT
  Age: 75 Year
  Sex: Male

DRUGS (3)
  1. AVONEX [Suspect]
     Active Substance: INTERFERON BETA-1A
     Indication: MULTIPLE SCLEROSIS
     Route: 030
  2. OCUVITE [Concomitant]
     Active Substance: VITAMINS
  3. PREVAGEN [Concomitant]
     Active Substance: DIETARY SUPPLEMENT

REACTIONS (2)
  - Multiple sclerosis relapse [Not Recovered/Not Resolved]
  - Cerebrovascular accident [Not Recovered/Not Resolved]

NARRATIVE: CASE EVENT DATE: 20151112
